FAERS Safety Report 8549218-7 (Version None)
Quarter: 2012Q3

REPORT INFORMATION
  Report Type: 
  Country: None (occurrence: None)
  Receive Date: 20120730
  Receipt Date: 20120702
  Transmission Date: 20120928
  Serious: Yes (Life-Threatening)
  Sender: FDA-Public Use
  Company Number: ES-009507513-2009SP025368

PATIENT

DRUGS (2)
  1. POSACONAZOLE [Suspect]
     Indication: ANTIFUNGAL PROPHYLAXIS
     Dosage: 200 MG, QD
     Route: 048
     Dates: start: 20090902, end: 20090916
  2. VANCOMYCIN [Suspect]
     Indication: PYREXIA
     Dosage: 1000 MG, BID
     Route: 042
     Dates: start: 20090912, end: 20090915

REACTIONS (1)
  - RENAL FAILURE [None]
